FAERS Safety Report 5236473-4 (Version None)
Quarter: 2007Q1

REPORT INFORMATION
  Report Type: 
  Country: None (occurrence: None)
  Receive Date: 20070208
  Receipt Date: 20070126
  Transmission Date: 20070707
  Serious: Yes (Other)
  Sender: FDA-Public Use
  Company Number: 15578

PATIENT
  Age: 53 Year
  Sex: Male
  Weight: 78.6 kg

DRUGS (2)
  1. LEUCOVORIN CALCIUM [Suspect]
     Indication: RECTAL CANCER METASTATIC
     Dosage: 300 MG IV
     Route: 042
     Dates: start: 20070112, end: 20070112
  2. OXALIPLATIN [Suspect]
     Indication: RECTAL CANCER METASTATIC
     Dosage: 155 MG IV
     Route: 042
     Dates: start: 20070112, end: 20070112

REACTIONS (9)
  - DIAPHRAGMATIC DISORDER [None]
  - DRUG HYPERSENSITIVITY [None]
  - ERYTHEMA [None]
  - INFUSION RELATED REACTION [None]
  - OESOPHAGEAL PAIN [None]
  - PARAESTHESIA [None]
  - PARAESTHESIA ORAL [None]
  - THROAT TIGHTNESS [None]
  - VOMITING [None]
